FAERS Safety Report 24914755 (Version 1)
Quarter: 2025Q1

REPORT INFORMATION
  Report Type: Spontaneous
  Country: IN (occurrence: IN)
  Receive Date: 20250203
  Receipt Date: 20250203
  Transmission Date: 20250408
  Serious: Yes (Other)
  Sender: ASTELLAS
  Company Number: IN-ASTELLAS-2025-AER-004997

PATIENT
  Age: 34 Year
  Sex: Male

DRUGS (2)
  1. TACROLIMUS [Suspect]
     Active Substance: TACROLIMUS
     Indication: Renal transplant
     Route: 065
  2. MYCOPHENOLATE MOFETIL [Concomitant]
     Active Substance: MYCOPHENOLATE MOFETIL
     Indication: Renal transplant
     Route: 065

REACTIONS (7)
  - Dengue fever [Recovered/Resolved]
  - Pancreatitis acute [Recovered/Resolved]
  - Pancreatitis necrotising [Unknown]
  - Haematoma [Unknown]
  - Haemoperitoneum [Unknown]
  - Shock [Unknown]
  - Anaemia [Unknown]
